FAERS Safety Report 9603616 (Version 3)
Quarter: 2013Q4

REPORT INFORMATION
  Report Type: Spontaneous
  Country: US (occurrence: US)
  Receive Date: 20131007
  Receipt Date: 20131223
  Transmission Date: 20140711
  Serious: No
  Sender: FDA-Public Use
  Company Number: US-PFIZER INC-2013281254

PATIENT
  Age: 58 Year
  Sex: Male

DRUGS (4)
  1. VIAGRA [Suspect]
     Indication: ERECTILE DYSFUNCTION
     Dosage: UNK
  2. TIZANIDINE HYDROCHLORIDE [Concomitant]
     Dosage: 4 MG, UNK
  3. GABAPENTIN [Concomitant]
     Dosage: 600 MG, UNK
  4. OXYCODONE HYDROCHLORIDE [Concomitant]
     Dosage: 10 MG, UNK

REACTIONS (1)
  - Nasopharyngitis [Unknown]
